FAERS Safety Report 25892707 (Version 1)
Quarter: 2025Q4

REPORT INFORMATION
  Report Type: Spontaneous
  Country: US (occurrence: US)
  Receive Date: 20251007
  Receipt Date: 20251007
  Transmission Date: 20260118
  Serious: Yes (Other)
  Sender: NOVARTIS
  Company Number: US-002147023-NVSC2025US150602

PATIENT
  Sex: Male
  Weight: 79.4 kg

DRUGS (1)
  1. PLUVICTO [Suspect]
     Active Substance: LUTETIUM LU-177 VIPIVOTIDE TETRAXETAN
     Indication: Prostate cancer
     Dosage: 200.9 MCI
     Route: 042
     Dates: start: 20250814

REACTIONS (2)
  - Prostate cancer [Unknown]
  - Malignant neoplasm progression [Unknown]
